FAERS Safety Report 6125031-5 (Version None)
Quarter: 2009Q1

REPORT INFORMATION
  Report Type: 
  Country: None (occurrence: None)
  Receive Date: 20090319
  Receipt Date: 20090304
  Transmission Date: 20090719
  Serious: Yes (Death)
  Sender: FDA-Public Use
  Company Number: VE-GENENTECH-278597

PATIENT
  Sex: Male

DRUGS (3)
  1. XOLAIR [Suspect]
     Indication: ASTHMA
     Dosage: UNK MG, UNK
     Route: 058
  2. FORADIL [Suspect]
     Indication: ASTHMA
     Dosage: 12 MG, UNK
  3. BUDESONIDE [Suspect]
     Indication: DRUG USE FOR UNKNOWN INDICATION
     Dosage: 400 MG, BID

REACTIONS (1)
  - RESPIRATORY ARREST [None]
